FAERS Safety Report 6993976-X (Version None)
Quarter: 2010Q3

REPORT INFORMATION
  Report Type: 
  Country: None (occurrence: None)
  Receive Date: 20100917
  Receipt Date: 20100311
  Transmission Date: 20110219
  Serious: Yes (Other)
  Sender: FDA-Public Use
  Company Number: US-ASTRAZENECA-2009UW20439

PATIENT
  Age: 33 Year
  Sex: Female
  Weight: 196 kg

DRUGS (5)
  1. SEROQUEL [Suspect]
     Indication: BIPOLAR DISORDER
     Route: 048
     Dates: start: 20060601, end: 20070601
  2. GEODON [Concomitant]
     Dates: start: 20060101, end: 20070101
  3. CLONAZEPAM [Concomitant]
     Dates: start: 20070101
  4. PAXIL CR [Concomitant]
  5. HALDOL [Concomitant]
     Dates: start: 20060101

REACTIONS (3)
  - DIABETES MELLITUS [None]
  - OBESITY [None]
  - TARDIVE DYSKINESIA [None]
